FAERS Safety Report 8236631-0 (Version None)
Quarter: 2012Q1

REPORT INFORMATION
  Report Type: 
  Country: None (occurrence: None)
  Receive Date: 20120326
  Receipt Date: 20120326
  Transmission Date: 20120608
  Serious: Yes (Life-Threatening, Hospitalization)
  Sender: FDA-Public Use
  Company Number: None

PATIENT
  Age: 86 Year
  Sex: Male
  Weight: 77.1115 kg

DRUGS (2)
  1. PRADAXA 150 MG CAPSULE BOEHRINGER INGELHEIM PHARMA, INC. [Suspect]
     Indication: HEART VALVE INCOMPETENCE
     Dosage: 150 MG TWICE ORAL
     Route: 048
     Dates: start: 20110501, end: 20120201
  2. PRADAXA 150 MG CAPSULE BOEHRINGER INGELHEIM PHARMA, INC. [Suspect]
     Indication: ATRIAL FIBRILLATION
     Dosage: 150 MG TWICE ORAL
     Route: 048
     Dates: start: 20110501, end: 20120201

REACTIONS (8)
  - COUGH [None]
  - GASTROINTESTINAL HAEMORRHAGE [None]
  - CARDIAC FAILURE CONGESTIVE [None]
  - DYSPNOEA [None]
  - ABDOMINAL DISCOMFORT [None]
  - RASH [None]
  - WEIGHT DECREASED [None]
  - GASTRIC ULCER [None]
